FAERS Safety Report 8326420 (Version 6)
Quarter: 2013Q3

REPORT INFORMATION
  Report Type: Spontaneous
  Country: US (occurrence: US)
  Receive Date: 20120109
  Receipt Date: 20130829
  Transmission Date: 20140515
  Serious: Yes (Other)
  Sender: FDA-Public Use
  Company Number: US-PFIZER INC-2012004952

PATIENT
  Age: 59 Year
  Sex: Female
  Weight: 125 kg

DRUGS (11)
  1. CHANTIX [Suspect]
     Indication: SMOKING CESSATION THERAPY
     Dosage: 0.5 MG, 1X/DAY
     Route: 048
     Dates: start: 2011, end: 2011
  2. CHANTIX [Suspect]
     Dosage: 0.5 MG, DAILY
     Route: 048
     Dates: start: 20120106, end: 201201
  3. CHANTIX [Suspect]
     Dosage: UNK
     Dates: start: 201201
  4. CELEXA [Concomitant]
     Indication: ANTIDEPRESSANT THERAPY
     Dosage: 40 MG, DAILY
  5. KLONOPIN [Concomitant]
     Indication: ANXIOLYTIC THERAPY
     Dosage: 1MG IN MORNING AND 2MG AT NIGHT
  6. TRAZODONE [Concomitant]
     Indication: AFFECTIVE DISORDER
     Dosage: 300 MG, 1X/DAY AT NIGHT
  7. TRAZODONE [Concomitant]
     Indication: SLEEP DISORDER
  8. BENADRYL [Concomitant]
     Indication: SLEEP DISORDER
     Dosage: 100 MG, 1X/DAY AT NIGHT
  9. NEURONTIN [Concomitant]
     Indication: SPINAL OSTEOARTHRITIS
     Dosage: UNK
  10. OMEPRAZOLE [Concomitant]
     Dosage: UNK
  11. VICODIN [Concomitant]
     Dosage: 750 MG, UNK

REACTIONS (8)
  - Dyspnoea [Unknown]
  - Chest discomfort [Unknown]
  - Cough [Unknown]
  - Anxiety [Unknown]
  - Feeling abnormal [Unknown]
  - Dizziness [Unknown]
  - Nervousness [Unknown]
  - Emotional disorder [Unknown]
